FAERS Safety Report 17588548 (Version 1)
Quarter: 2020Q1

REPORT INFORMATION
  Report Type: Spontaneous
  Country: CA (occurrence: CA)
  Receive Date: 20200326
  Receipt Date: 20200326
  Transmission Date: 20200409
  Serious: Yes (Other)
  Sender: FDA-Public Use
  Company Number: CA-TEVA-2020-CA-1213666

PATIENT
  Age: 73 Year
  Sex: Female

DRUGS (6)
  1. DILTIAZEM. [Concomitant]
     Active Substance: DILTIAZEM
  2. GABAPENTIN. [Concomitant]
     Active Substance: GABAPENTIN
  3. HYDROCHLOROTHIAZIDE. [Concomitant]
     Active Substance: HYDROCHLOROTHIAZIDE
  4. PANTOPRAZOLE [Concomitant]
     Active Substance: PANTOPRAZOLE
  5. TEVA-LISINOPRIL (TYPE P) [Suspect]
     Active Substance: LISINOPRIL
     Indication: HYPERTENSION
     Dosage: 20 MILLIGRAM DAILY;
     Route: 048
  6. LORAZEPAM. [Concomitant]
     Active Substance: LORAZEPAM

REACTIONS (6)
  - Pruritus [Recovering/Resolving]
  - Rash [Recovering/Resolving]
  - Hypersensitivity [Recovering/Resolving]
  - Product substitution issue [Recovering/Resolving]
  - Lip swelling [Recovering/Resolving]
  - Throat irritation [Recovering/Resolving]
